FAERS Safety Report 7854160-0 (Version None)
Quarter: 2011Q4

REPORT INFORMATION
  Report Type: 
  Country: None (occurrence: None)
  Receive Date: 20111026
  Receipt Date: 20101005
  Transmission Date: 20120403
  Serious: No
  Sender: FDA-Public Use
  Company Number: US-BRISTOL-MYERS SQUIBB COMPANY-15319627

PATIENT
  Age: 21 Year
  Sex: Male
  Weight: 63 kg

DRUGS (1)
  1. BUSPAR [Suspect]
     Dosage: GENERIC BUSPAR STARTED APPROX 5 YEARS AGO
     Dates: start: 19960101

REACTIONS (1)
  - RASH PRURITIC [None]
